FAERS Safety Report 7303680-6 (Version None)
Quarter: 2011Q1

REPORT INFORMATION
  Report Type: 
  Country: None (occurrence: None)
  Receive Date: 20110221
  Receipt Date: 20110215
  Transmission Date: 20110831
  Serious: Yes (Hospitalization)
  Sender: FDA-Public Use
  Company Number: IE-BAYER-2011-014403

PATIENT
  Age: 67 Year
  Sex: Male

DRUGS (5)
  1. PREDNISOLONE [Concomitant]
     Indication: LIVER DISORDER
     Dosage: UNK
     Route: 048
     Dates: start: 20101101
  2. ALDACTONE [Suspect]
     Indication: ASCITES
     Dosage: 25 MG, UNKNOWN
     Route: 048
     Dates: start: 20101101
  3. ALDACTONE [Suspect]
     Indication: PERITONITIS BACTERIAL
  4. CIPROXIN [Suspect]
     Indication: PERITONITIS BACTERIAL
  5. CIPROXIN [Suspect]
     Indication: ASCITES
     Dosage: 250 MG, UNK
     Route: 048
     Dates: start: 20101101

REACTIONS (1)
  - NEUTROPENIA [None]
